FAERS Safety Report 7546046-6 (Version None)
Quarter: 2011Q2

REPORT INFORMATION
  Report Type: 
  Country: None (occurrence: None)
  Receive Date: 20110614
  Receipt Date: 20110601
  Transmission Date: 20111010
  Serious: Yes (Hospitalization, Other)
  Sender: FDA-Public Use
  Company Number: PHHY2011US48184

PATIENT
  Sex: Female

DRUGS (1)
  1. COMBIPATCH [Suspect]
     Indication: HOT FLUSH
     Dosage: 50140 OT, UNK

REACTIONS (2)
  - DEEP VEIN THROMBOSIS [None]
  - PALPITATIONS [None]
